FAERS Safety Report 5205955-3 (Version None)
Quarter: 2007Q1

REPORT INFORMATION
  Report Type: 
  Country: None (occurrence: None)
  Receive Date: 20070111
  Receipt Date: 20061227
  Transmission Date: 20070707
  Serious: Yes (Other)
  Sender: FDA-Public Use
  Company Number: JP-BRISTOL-MYERS SQUIBB COMPANY-13636451

PATIENT
  Age: 35 Year
  Sex: Male

DRUGS (1)
  1. GATIFLO TABS 100 MG [Suspect]
     Dates: start: 20031201, end: 20040101

REACTIONS (2)
  - LIVER DISORDER [None]
  - OCULOMUCOCUTANEOUS SYNDROME [None]
